FAERS Safety Report 4912048-9 (Version None)
Quarter: 2006Q1

REPORT INFORMATION
  Report Type: 
  Country: None (occurrence: None)
  Receive Date: 20060213
  Receipt Date: 20060109
  Transmission Date: 20060701
  Serious: Yes (Hospitalization)
  Sender: FDA-Public Use
  Company Number: 2005171444

PATIENT
  Age: 49 Year
  Sex: Male
  Weight: 82.3 kg

DRUGS (6)
  1. IRINOTECAN HCL [Suspect]
     Indication: RECTAL CANCER
     Dosage: (120 MG, WEEKLY), INTRAVENOUS
     Route: 042
     Dates: start: 20051205
  2. CAPECITABINE (CAPECITABINE) [Suspect]
     Indication: RECTAL CANCER
     Dosage: (1300 MG, DAILY), ORAL
     Route: 048
     Dates: start: 20051205, end: 20051216
  3. ACETAMINOPHEN [Concomitant]
  4. CO-DANTHRAMER (DANTRON, POLOXAMER) [Concomitant]
  5. IMODIUM [Concomitant]
  6. PYRIDOXINE (PYRIDOXINE) [Concomitant]

REACTIONS (3)
  - INTESTINAL OBSTRUCTION [None]
  - MALIGNANT NEOPLASM PROGRESSION [None]
  - RECTAL CANCER [None]
